FAERS Safety Report 5012598-3 (Version None)
Quarter: 2006Q2

REPORT INFORMATION
  Report Type: 
  Country: None (occurrence: None)
  Receive Date: 20060410
  Receipt Date: 20050829
  Transmission Date: 20061013
  Serious: Yes (Hospitalization)
  Sender: FDA-Public Use
  Company Number: 05P-163-0309725-00

PATIENT
  Age: 41 Year
  Sex: Female
  Weight: 63.5036 kg

DRUGS (3)
  1. DEPAKOTE [Suspect]
     Indication: BIPOLAR II DISORDER
     Dosage: SEE IMAGE
     Dates: start: 20020514, end: 20050601
  2. DEPAKOTE [Suspect]
     Indication: BIPOLAR II DISORDER
     Dosage: SEE IMAGE
     Dates: start: 20050815
  3. GABAPENTIN [Concomitant]
     Dates: start: 20050815

REACTIONS (5)
  - DEPRESSION [None]
  - DIARRHOEA [None]
  - HEADACHE [None]
  - NAUSEA [None]
  - PRURITUS [None]
